FAERS Safety Report 8439248 (Version 2)
Quarter: 2013Q2

REPORT INFORMATION
  Report Type: Spontaneous
  Country: US (occurrence: None)
  Receive Date: 20120104
  Receipt Date: 20120508
  Transmission Date: 20140414
  Serious: Yes (Other)
  Sender: FDA-Public Use
  Company Number: 2011HGS-002792

PATIENT
  Age: 48 Year
  Sex: Female
  Weight: 156.49 kg

DRUGS (3)
  1. AMLODIPINE - BENAZAPRIL (AMLODIPINE W/BENAZEPRIL AMLODIPINE) [Concomitant]
  2. HYDROCHLOROTHIAZIDE (HYDROCHLOROTHIAZIDE) [Concomitant]
  3. BENLYSTA [Suspect]
     Indication: SYSTEMIC LUPUS ERYTHEMATOSUS
     Dosage: INTRAVENOUS DRIP
     Route: 041
     Dates: start: 20111020

REACTIONS (5)
  - DIARRHOEA [None]
  - Vomiting [None]
  - Diarrhoea [None]
  - Nausea [None]
  - Headache [None]
